APPROVED DRUG PRODUCT: GRIFULVIN V
Active Ingredient: GRISEOFULVIN, MICROCRYSTALLINE
Strength: 125MG/5ML **Federal Register determination that product was not discontinued or withdrawn for safety or effectiveness reasons**
Dosage Form/Route: SUSPENSION;ORAL
Application: N050448 | Product #001
Applicant: JOHNSON AND JOHNSON CONSUMER COMPANIES INC
Approved: Approved Prior to Jan 1, 1982 | RLD: Yes | RS: No | Type: DISCN